FAERS Safety Report 4859821-3 (Version None)
Quarter: 2005Q4

REPORT INFORMATION
  Report Type: 
  Country: None (occurrence: None)
  Receive Date: 20051219
  Receipt Date: 20051208
  Transmission Date: 20060501
  Serious: Yes (Other)
  Sender: FDA-Public Use
  Company Number: AT-GLAXOSMITHKLINE-B0402973A

PATIENT
  Age: 32 Year
  Sex: Female

DRUGS (4)
  1. AUGMENTIN [Suspect]
     Route: 065
  2. LEVOFLOXACIN [Concomitant]
     Route: 065
  3. CLARITHROMYCIN [Concomitant]
     Route: 065
  4. DOXYCYCLINE [Concomitant]
     Route: 065

REACTIONS (2)
  - DRUG EXPOSURE DURING PREGNANCY [None]
  - INTRA-UTERINE DEATH [None]
